FAERS Safety Report 10094300 (Version 1)
Quarter: 2014Q2

REPORT INFORMATION
  Report Type: Spontaneous
  Country: US (occurrence: None)
  Receive Date: 20140421
  Receipt Date: 20140421
  Transmission Date: 20141212
  Serious: No
  Sender: FDA-Public Use
  Company Number: None

PATIENT
  Age: 59 Year
  Sex: Female
  Weight: 49.44 kg

DRUGS (2)
  1. LIVALO [Suspect]
     Indication: BLOOD CHOLESTEROL
     Dosage: 1 TABLET, ONCE DAILY, TAKEN BY MOUTH
     Route: 048
     Dates: start: 20140226, end: 20140331
  2. WELCOHL [Suspect]
     Indication: BLOOD CHOLESTEROL
     Dates: start: 20140403, end: 20140406

REACTIONS (3)
  - Fatigue [None]
  - Myalgia [None]
  - Headache [None]
